FAERS Safety Report 22306343 (Version 1)
Quarter: 2023Q2

REPORT INFORMATION
  Report Type: Spontaneous
  Country: IE (occurrence: IE)
  Receive Date: 20230511
  Receipt Date: 20230511
  Transmission Date: 20230722
  Serious: Yes (Hospitalization, Other)
  Sender: FDA-Public Use
  Company Number: None

PATIENT

DRUGS (5)
  1. PREDNISOLONE [Suspect]
     Active Substance: PREDNISOLONE
     Indication: Vasculitis
     Dosage: UNK
  2. PREDNISOLONE [Suspect]
     Active Substance: PREDNISOLONE
     Indication: Methaemoglobinaemia
  3. BENZOCAINE [Suspect]
     Active Substance: BENZOCAINE
     Indication: Local anaesthesia
     Dosage: UNK
     Route: 048
  4. DAPSONE [Suspect]
     Active Substance: DAPSONE
     Indication: Cutaneous vasculitis
     Dosage: UNK
  5. VITAMIN C [Suspect]
     Active Substance: ASCORBIC ACID
     Indication: Methaemoglobinaemia
     Dosage: UNK

REACTIONS (10)
  - Neutropenic sepsis [Recovered/Resolved]
  - Hypoxia [Recovered/Resolved]
  - Drug reaction with eosinophilia and systemic symptoms [Recovered/Resolved]
  - Joint swelling [Recovered/Resolved]
  - Vasculitis [Recovered/Resolved]
  - Arthralgia [Recovered/Resolved]
  - Methaemoglobinaemia [Recovered/Resolved]
  - Oxygen saturation decreased [Recovered/Resolved]
  - Depressed mood [Unknown]
  - Rash [Recovered/Resolved]
